FAERS Safety Report 4448968-1 (Version None)
Quarter: 2004Q3

REPORT INFORMATION
  Report Type: 
  Country: None (occurrence: None)
  Receive Date: 20040909
  Receipt Date: 20040819
  Transmission Date: 20050211
  Serious: Yes (Other)
  Sender: FDA-Public Use
  Company Number: USA040671490

PATIENT
  Age: 68 Year
  Sex: Female
  Weight: 59 kg

DRUGS (1)
  1. FORTEO [Suspect]
     Indication: OSTEOPOROSIS
     Dosage: 20 UG DAY
     Dates: start: 20040401

REACTIONS (7)
  - EYELID FUNCTION DISORDER [None]
  - FACIAL PALSY [None]
  - FATIGUE [None]
  - FEELING ABNORMAL [None]
  - MUSCLE CRAMP [None]
  - PAIN [None]
  - PHARMACEUTICAL PRODUCT COMPLAINT [None]
